FAERS Safety Report 5447523-4 (Version None)
Quarter: 2007Q3

REPORT INFORMATION
  Report Type: 
  Country: None (occurrence: None)
  Receive Date: 20070910
  Receipt Date: 20070907
  Transmission Date: 20080115
  Serious: Yes (Hospitalization)
  Sender: FDA-Public Use
  Company Number: B0486134A

PATIENT
  Age: 73 Year
  Sex: Female

DRUGS (16)
  1. VALTREX [Suspect]
     Indication: GENITAL HERPES
     Route: 048
     Dates: start: 20070702, end: 20070706
  2. ASPARA K [Concomitant]
     Route: 065
  3. NITOROL R [Concomitant]
     Route: 048
  4. PRAVASTATIN [Concomitant]
     Route: 048
  5. ALFAROL [Concomitant]
     Route: 048
  6. IMURAN [Concomitant]
     Route: 048
  7. UNKNOWN DRUG [Concomitant]
     Route: 048
  8. HALCION [Concomitant]
     Route: 048
  9. PERSANTIN [Concomitant]
     Route: 065
  10. TRYPTANOL [Concomitant]
     Route: 065
  11. MAGNESIUM OXIDE [Concomitant]
     Route: 048
  12. BIOFERMIN [Concomitant]
     Route: 048
  13. ADONA (AC-17) [Concomitant]
     Route: 065
  14. VASOLAN [Concomitant]
     Route: 065
  15. ALLOPURINOL [Concomitant]
     Route: 048
  16. ADALAT [Concomitant]
     Route: 048

REACTIONS (2)
  - ANAEMIA [None]
  - PANCYTOPENIA [None]
